FAERS Safety Report 6991926-3 (Version None)
Quarter: 2010Q3

REPORT INFORMATION
  Report Type: 
  Country: None (occurrence: None)
  Receive Date: 20100917
  Receipt Date: 20100907
  Transmission Date: 20110219
  Serious: Yes (Hospitalization, Other)
  Sender: FDA-Public Use
  Company Number: PHHY2010US59351

PATIENT
  Sex: Male

DRUGS (2)
  1. EXJADE [Suspect]
     Indication: THALASSAEMIA
     Dosage: 1750 MG DAILY
     Route: 048
  2. EXJADE [Suspect]
     Dosage: EIGHT TABLETS

REACTIONS (3)
  - LOWER LIMB FRACTURE [None]
  - PULMONARY HYPERTENSION [None]
  - SYNCOPE [None]
